FAERS Safety Report 23132595 (Version 3)
Quarter: 2024Q1

REPORT INFORMATION
  Report Type: Report from Study
  Country: US (occurrence: US)
  Receive Date: 20231101
  Receipt Date: 20240129
  Transmission Date: 20240409
  Serious: Yes (Other)
  Sender: FDA-Public Use
  Company Number: US-ACADIA PHARMACEUTICALS INC.-ACA-2023-TRF-004567

PATIENT
  Age: 18 Year
  Sex: Female

DRUGS (5)
  1. DAYBUE [Suspect]
     Active Substance: TROFINETIDE
     Indication: Rett syndrome
     Dosage: 30 MILLILITER, BID VIA G-TUBE
  2. DAYBUE [Suspect]
     Active Substance: TROFINETIDE
     Dosage: 40 MILLILITER, BID VIA G-TUBE
  3. DAYBUE [Suspect]
     Active Substance: TROFINETIDE
     Dosage: 30 MILLILITER, BID VIA G-TUBE
  4. DAYBUE [Suspect]
     Active Substance: TROFINETIDE
     Dosage: 32 MILLILITER, BID VIA G-TUBE
  5. DAYBUE [Suspect]
     Active Substance: TROFINETIDE
     Dosage: 30 MILLILITER, BID VIA G-TUBE

REACTIONS (11)
  - Pneumonia [Unknown]
  - Drooling [Recovered/Resolved]
  - Dysphagia [Recovered/Resolved]
  - Grimacing [Unknown]
  - Dyskinesia [Unknown]
  - Foot operation [Unknown]
  - Limb immobilisation [Unknown]
  - Dysphagia [Unknown]
  - Drooling [Unknown]
  - Underdose [Not Recovered/Not Resolved]
  - Foot operation [Unknown]

NARRATIVE: CASE EVENT DATE: 20230801
